FAERS Safety Report 6841760-X (Version None)
Quarter: 2010Q3

REPORT INFORMATION
  Report Type: 
  Country: None (occurrence: None)
  Receive Date: 20100714
  Receipt Date: 20070713
  Transmission Date: 20110219
  Serious: No
  Sender: FDA-Public Use
  Company Number: US-PFIZER INC-2007059884

PATIENT
  Sex: Female
  Weight: 180 kg

DRUGS (13)
  1. CHANTIX [Suspect]
     Indication: SMOKING CESSATION THERAPY
     Route: 048
     Dates: start: 20070701
  2. VITAMINS [Concomitant]
     Route: 048
  3. ACETYLSALICYLIC ACID [Concomitant]
     Route: 048
  4. CALCIUM [Concomitant]
     Route: 048
  5. VITAMIN C [Concomitant]
     Route: 048
  6. VITAMIN D [Concomitant]
     Route: 048
  7. CHONDROITIN/GLUCOSAMINE [Concomitant]
     Route: 048
  8. SOFTENERS, EMOLLIENTS [Concomitant]
     Route: 048
  9. FOSAMAX [Concomitant]
     Route: 048
  10. LIPITOR [Concomitant]
     Route: 048
  11. TOPROL-XL [Concomitant]
     Route: 048
  12. ZOLOFT [Concomitant]
     Route: 048
  13. PREMPRO [Concomitant]
     Route: 048

REACTIONS (6)
  - BODY TEMPERATURE [None]
  - HEADACHE [None]
  - HYPERHIDROSIS [None]
  - INFLUENZA LIKE ILLNESS [None]
  - PAIN [None]
  - SCAN MYOCARDIAL PERFUSION [None]
